FAERS Safety Report 18880393 (Version 1)
Quarter: 2021Q1

REPORT INFORMATION
  Report Type: Spontaneous
  Country: US (occurrence: US)
  Receive Date: 20210211
  Receipt Date: 20210211
  Transmission Date: 20210420
  Serious: No
  Sender: FDA-Public Use
  Company Number: US-CURIUM-2001000128

PATIENT
  Age: 62 Year
  Sex: Female

DRUGS (1)
  1. ULTRATAG RBC [Suspect]
     Active Substance: TECHNETIUM TC-99M RED BLOOD CELLS

REACTIONS (1)
  - Pruritus [Recovered/Resolved]
